FAERS Safety Report 16647491 (Version 2)
Quarter: 2019Q3

REPORT INFORMATION
  Report Type: Spontaneous
  Country: US (occurrence: US)
  Receive Date: 20190730
  Receipt Date: 20190805
  Transmission Date: 20191004
  Serious: No
  Sender: FDA-Public Use
  Company Number: US-PFIZER INC-2019324331

PATIENT
  Age: 22 Year
  Sex: Male
  Weight: 102 kg

DRUGS (2)
  1. NEURONTIN [Suspect]
     Active Substance: GABAPENTIN
     Indication: SEIZURE
     Dosage: 400 MG, 2X/DAY
     Route: 048
     Dates: start: 201605
  2. NEURONTIN [Suspect]
     Active Substance: GABAPENTIN
     Indication: AFFECTIVE DISORDER

REACTIONS (1)
  - Drug effective for unapproved indication [Unknown]
